FAERS Safety Report 19589515 (Version 1)
Quarter: 2021Q3

REPORT INFORMATION
  Report Type: Report from Study
  Country: US (occurrence: US)
  Receive Date: 20210721
  Receipt Date: 20210721
  Transmission Date: 20211014
  Serious: Yes (Other)
  Sender: FDA-Public Use
  Company Number: US-PFIZER INC-2021206097

PATIENT
  Age: 70 Year
  Sex: Female

DRUGS (2)
  1. LETROZOLE. [Concomitant]
     Active Substance: LETROZOLE
     Dosage: UNK
  2. IBRANCE [Suspect]
     Active Substance: PALBOCICLIB
     Indication: BREAST CANCER FEMALE
     Dosage: 125 MG, CYCLIC (DAILY FOR 21 DAYS OF 28 DAY CYCLE)
     Route: 048
     Dates: start: 20210119

REACTIONS (16)
  - Stomatitis [Recovered/Resolved]
  - Myelosuppression [Unknown]
  - Mucosal inflammation [Recovered/Resolved]
  - Joint swelling [Recovering/Resolving]
  - Red blood cell count decreased [Not Recovered/Not Resolved]
  - Tumour marker increased [Recovering/Resolving]
  - Sputum discoloured [Unknown]
  - White blood cell count decreased [Unknown]
  - Alopecia [Not Recovered/Not Resolved]
  - Productive cough [Unknown]
  - Arthralgia [Unknown]
  - Balance disorder [Unknown]
  - Fatigue [Not Recovered/Not Resolved]
  - Glomerular filtration rate decreased [Unknown]
  - Cough [Not Recovered/Not Resolved]
  - Asthenia [Unknown]

NARRATIVE: CASE EVENT DATE: 2021
